FAERS Safety Report 10300252 (Version 4)
Quarter: 2015Q3

REPORT INFORMATION
  Report Type: Report from Study
  Country: CA (occurrence: CA)
  Receive Date: 20140711
  Receipt Date: 20150804
  Transmission Date: 20151125
  Serious: Yes (Hospitalization, Other)
  Sender: FDA-Public Use
  Company Number: CA-ALEXION-A201400201

PATIENT

DRUGS (16)
  1. SOLIRIS [Suspect]
     Active Substance: ECULIZUMAB
     Indication: HAEMOLYTIC URAEMIC SYNDROME
     Dosage: 600 MG, QW
     Route: 042
     Dates: start: 20130111, end: 20130117
  2. SOLIRIS [Suspect]
     Active Substance: ECULIZUMAB
     Dosage: 300 MG, Q2W
     Route: 042
     Dates: start: 20130606, end: 20140102
  3. SOLIRIS [Suspect]
     Active Substance: ECULIZUMAB
     Dosage: 300 MG, Q3W
     Route: 042
     Dates: start: 20140123
  4. CALCIUM CARBONATE W/IRON/VITAMINS NOS [Concomitant]
     Indication: SUPPLEMENTATION THERAPY
     Dosage: 40 IU, QD
     Route: 048
     Dates: start: 201301
  5. SOLIRIS [Suspect]
     Active Substance: ECULIZUMAB
     Dosage: 900 MG, Q2W
     Route: 042
     Dates: start: 20130315, end: 20130523
  6. SOLIRIS [Suspect]
     Active Substance: ECULIZUMAB
     Dosage: 300 MG, Q3W
     Route: 042
     Dates: start: 20140220
  7. SOLIRIS [Suspect]
     Active Substance: ECULIZUMAB
     Dosage: 600 MG, Q2W
     Route: 042
     Dates: start: 20130215, end: 20130301
  8. SOLIRIS [Suspect]
     Active Substance: ECULIZUMAB
     Dosage: 300 MG, SINGLE
     Route: 042
     Dates: start: 20130131
  9. SOLIRIS [Suspect]
     Active Substance: ECULIZUMAB
     Dosage: 300 MG, SINGLE
     Route: 042
     Dates: start: 20130117, end: 20130117
  10. MENINGOCOCCAL POLYSACCHARIDE VACCINE A NOS [Suspect]
     Active Substance: MENINGOCOCCAL POLYSACCHARIDE VACCINE A\NEISSERIA MENINGITIDIS GROUP A CAPSULAR POLYSACCHARIDE ANTIGEN
     Indication: PROPHYLAXIS
     Dosage: 0.5 ML, SINGLE
     Route: 030
     Dates: start: 20141006, end: 20141006
  11. RITALIN [Concomitant]
     Active Substance: METHYLPHENIDATE HYDROCHLORIDE
     Indication: PSYCHOMOTOR HYPERACTIVITY
     Dosage: 10 MG, BID
     Route: 048
     Dates: start: 201308
  12. CYPROHEPTADINE. [Concomitant]
     Active Substance: CYPROHEPTADINE
     Indication: INCREASED APPETITE
     Dosage: 1/2 TAB, BID
     Route: 048
     Dates: start: 201306
  13. SOLIRIS [Suspect]
     Active Substance: ECULIZUMAB
     Dosage: 300 MG, Q2W
     Route: 042
     Dates: start: 20130201, end: 20140130
  14. AMOXICILLIN                        /00249602/ [Concomitant]
     Active Substance: AMOXICILLIN
     Indication: PROPHYLAXIS
     Dosage: 6 ML, BID
     Route: 048
     Dates: start: 201301
  15. CELLCEPT [Concomitant]
     Active Substance: MYCOPHENOLATE MOFETIL\MYCOPHENOLATE MOFETIL HYDROCHLORIDE
     Indication: PROPHYLAXIS
     Dosage: 1.8 ML, BID
     Route: 048
     Dates: start: 201301
  16. PREDNISOLONE                       /00016204/ [Concomitant]
     Active Substance: PREDNISOLONE
     Indication: AUTOIMMUNE DISORDER
     Dosage: 5 ML, QD
     Route: 048
     Dates: start: 201301

REACTIONS (10)
  - Inappropriate schedule of drug administration [Unknown]
  - Headache [Recovered/Resolved]
  - Gastritis [Recovered/Resolved]
  - Failure to thrive [Not Recovered/Not Resolved]
  - Coagulation factor VIII level [Not Recovered/Not Resolved]
  - Abdominal pain [Recovered/Resolved]
  - Blood test abnormal [Recovering/Resolving]
  - Injection site pain [Recovered/Resolved]
  - Constipation [Recovered/Resolved]
  - Lactose intolerance [Unknown]

NARRATIVE: CASE EVENT DATE: 2014
